FAERS Safety Report 5001782-0 (Version None)
Quarter: 2006Q2

REPORT INFORMATION
  Report Type: 
  Country: None (occurrence: None)
  Receive Date: 20060512
  Receipt Date: 20060512
  Transmission Date: 20061013
  Serious: Yes (Other)
  Sender: FDA-Public Use
  Company Number: None

PATIENT
  Age: 51 Year
  Sex: Female
  Weight: 57.6068 kg

DRUGS (1)
  1. ZYRTEC [Suspect]
     Indication: SINUS CONGESTION
     Dates: start: 20060312, end: 20060318

REACTIONS (2)
  - APHASIA [None]
  - SOCIAL AVOIDANT BEHAVIOUR [None]
